FAERS Safety Report 8481781-7 (Version None)
Quarter: 2012Q3

REPORT INFORMATION
  Report Type: 
  Country: None (occurrence: None)
  Receive Date: 20120702
  Receipt Date: 20120622
  Transmission Date: 20120928
  Serious: Yes (Hospitalization, Other)
  Sender: FDA-Public Use
  Company Number: FR-EISAI INC-E7389-02613-SPO-FR

PATIENT
  Age: 78 Year
  Sex: Female

DRUGS (1)
  1. HALAVEN [Suspect]
     Route: 041
     Dates: start: 20120101

REACTIONS (2)
  - VOMITING [None]
  - MYOCARDIAL INFARCTION [None]
